FAERS Safety Report 10725005 (Version 1)
Quarter: 2015Q1

REPORT INFORMATION
  Report Type: Report from Study
  Country: US (occurrence: US)
  Receive Date: 20150120
  Receipt Date: 20150120
  Transmission Date: 20150721
  Serious: Yes (Hospitalization)
  Sender: FDA-Public Use
  Company Number: US-MERCK-1501USA005951

PATIENT
  Age: 52 Year
  Sex: Male
  Weight: 50.8 kg

DRUGS (6)
  1. IDARUBICIN [Suspect]
     Active Substance: IDARUBICIN
     Dosage: 8MG/M2, QD IV OVER 15 MIN ON DAY 4-6
     Route: 042
     Dates: start: 20141115, end: 20141116
  2. IDARUBICIN [Suspect]
     Active Substance: IDARUBICIN
     Indication: ACUTE MYELOID LEUKAEMIA
     Dosage: 12 MG/M2, QD IV OVER 15 MIN ON DAY 4-6
     Route: 042
     Dates: start: 20141106, end: 20141109
  3. CYTARABINE. [Suspect]
     Active Substance: CYTARABINE
     Indication: ACUTE MYELOID LEUKAEMIA
     Dosage: 1500 MG/M2, QD. CONTINOUS IV INFUSION ON DAY 4-7
     Route: 042
     Dates: start: 20141106, end: 20141109
  4. VORINOSTAT [Suspect]
     Active Substance: VORINOSTAT
     Indication: ACUTE MYELOID LEUKAEMIA
     Dosage: 500 MG, TID.  ON DAYS 1-3 (DAILY DOSE=1500 MG)
     Route: 048
     Dates: start: 20141103, end: 20141105
  5. VORINOSTAT [Suspect]
     Active Substance: VORINOSTAT
     Dosage: 500 MG, TID.  ON DAYS 1-3 (DAILY DOSE=1500 MG). CURRENT CYCLE=2
     Route: 048
     Dates: start: 20141212, end: 20141215
  6. CYTARABINE. [Suspect]
     Active Substance: CYTARABINE
     Dosage: 750 MG/M2, QD. CONTINOUS IV INFUSION ON DAY 4-6
     Route: 042
     Dates: start: 20141115, end: 20141117

REACTIONS (1)
  - Rectal haemorrhage [Recovered/Resolved]

NARRATIVE: CASE EVENT DATE: 20141228
